FAERS Safety Report 6168166-3 (Version None)
Quarter: 2009Q2

REPORT INFORMATION
  Report Type: 
  Country: None (occurrence: None)
  Receive Date: 20090423
  Receipt Date: 20090423
  Transmission Date: 20091009
  Serious: Yes (Life-Threatening, Hospitalization)
  Sender: FDA-Public Use
  Company Number: None

PATIENT
  Age: 69 Year
  Sex: Female
  Weight: 40 kg

DRUGS (1)
  1. SILDENAFIL CITRATE [Suspect]

REACTIONS (5)
  - INTERNATIONAL NORMALISED RATIO INCREASED [None]
  - MOUTH ULCERATION [None]
  - PHARYNGEAL ULCERATION [None]
  - PROTHROMBIN TIME PROLONGED [None]
  - SKIN ULCER [None]
